FAERS Safety Report 18209968 (Version 1)
Quarter: 2020Q3

REPORT INFORMATION
  Report Type: Spontaneous
  Country: IT (occurrence: IT)
  Receive Date: 20200829
  Receipt Date: 20200829
  Transmission Date: 20201103
  Serious: Yes (Other)
  Sender: FDA-Public Use
  Company Number: IT-ROCHE-2665587

PATIENT
  Age: 58 Year
  Sex: Female
  Weight: 74 kg

DRUGS (10)
  1. ANASTROZOLE. [Concomitant]
     Active Substance: ANASTROZOLE
     Route: 048
  2. PERJETA [Suspect]
     Active Substance: PERTUZUMAB
     Indication: BREAST CANCER
     Route: 041
     Dates: start: 20170310, end: 20200722
  3. DELTACORTENE [Concomitant]
     Active Substance: PREDNISONE
     Route: 048
  4. ONTRUZANT [Concomitant]
     Active Substance: TRASTUZUMAB-DTTB
     Indication: BREAST CANCER
     Route: 042
     Dates: start: 20170310, end: 20200812
  5. OMEPRAZOLE. [Concomitant]
     Active Substance: OMEPRAZOLE
     Route: 048
  6. IDROQUARK [Concomitant]
     Active Substance: HYDROCHLOROTHIAZIDE\RAMIPRIL
     Route: 048
  7. SIMVASTATIN. [Concomitant]
     Active Substance: SIMVASTATIN
     Route: 048
  8. LOBIVON [Concomitant]
     Active Substance: NEBIVOLOL HYDROCHLORIDE
     Route: 048
  9. CETIRIZINE [Concomitant]
     Active Substance: CETIRIZINE HYDROCHLORIDE
     Route: 048
  10. LACIREX [Concomitant]
     Active Substance: LACIDIPINE
     Route: 048

REACTIONS (2)
  - Skin exfoliation [Not Recovered/Not Resolved]
  - Pruritus [Not Recovered/Not Resolved]

NARRATIVE: CASE EVENT DATE: 20200701
